FAERS Safety Report 10083411 (Version 1)
Quarter: 2014Q2

REPORT INFORMATION
  Report Type: Spontaneous
  Country: US (occurrence: None)
  Receive Date: 20140416
  Receipt Date: 20140416
  Transmission Date: 20141212
  Serious: Yes (Other)
  Sender: FDA-Public Use
  Company Number: None

PATIENT
  Age: 46 Year
  Sex: Female
  Weight: 88.45 kg

DRUGS (1)
  1. ZI XIU TANG [Suspect]
     Indication: WEIGHT DECREASED
     Dates: start: 20140309, end: 20140311

REACTIONS (2)
  - Diarrhoea [None]
  - Haematochezia [None]
